FAERS Safety Report 7694471-5 (Version None)
Quarter: 2011Q3

REPORT INFORMATION
  Report Type: 
  Country: None (occurrence: None)
  Receive Date: 20110819
  Receipt Date: 20110809
  Transmission Date: 20111222
  Serious: Yes (Other)
  Sender: FDA-Public Use
  Company Number: PHHY2011AU72892

PATIENT
  Sex: Female

DRUGS (6)
  1. GLEEVEC [Suspect]
     Dosage: 400 MG, UNK
     Route: 065
  2. CYCLOPHOSPHAMIDE [Concomitant]
     Dosage: UNK UKN, UNK
     Route: 065
  3. VINCRISTINE [Concomitant]
     Dosage: UNK UKN, UNK
     Route: 065
  4. GLEEVEC [Suspect]
     Indication: ACUTE LYMPHOCYTIC LEUKAEMIA
     Dosage: 600 MG, DAILY
  5. ADRIAMYCIN PFS [Concomitant]
     Dosage: UNK UKN, UNK
     Route: 065
  6. DEXAMETHASONE [Concomitant]
     Dosage: UNK UKN, UNK
     Route: 065

REACTIONS (4)
  - NEUROPATHY PERIPHERAL [None]
  - DRUG TOLERANCE DECREASED [None]
  - DIABETES MELLITUS [None]
  - PANCYTOPENIA [None]
